FAERS Safety Report 17545753 (Version 2)
Quarter: 2020Q1

REPORT INFORMATION
  Report Type: Spontaneous
  Country: CN (occurrence: CN)
  Receive Date: 20200316
  Receipt Date: 20200317
  Transmission Date: 20200409
  Serious: Yes (Death, Life-Threatening, Hospitalization)
  Sender: FDA-Public Use
  Company Number: CN-PFIZER INC-2020110899

PATIENT
  Age: 32 Year
  Sex: Male
  Weight: 40 kg

DRUGS (4)
  1. SODIUM CHLORIDE. [Concomitant]
     Active Substance: SODIUM CHLORIDE
     Dosage: 100 ML, 2X/DAY
     Route: 041
     Dates: start: 20200109, end: 20200110
  2. RALTITREXED [Suspect]
     Active Substance: RALTITREXED
     Indication: CHEMOTHERAPY
     Dosage: 4 MG, 1X/DAY
     Route: 041
     Dates: start: 20200104, end: 20200104
  3. SODIUM CHLORIDE. [Concomitant]
     Active Substance: SODIUM CHLORIDE
     Indication: VEHICLE SOLUTION USE
     Dosage: 100 ML, 1X/DAY
     Route: 041
     Dates: start: 20200104, end: 20200104
  4. ZYVOX [Suspect]
     Active Substance: LINEZOLID
     Indication: ANTI-INFECTIVE THERAPY
     Dosage: 600 MG, 2X/DAY
     Route: 041
     Dates: start: 20200109, end: 20200110

REACTIONS (3)
  - White blood cell count decreased [Fatal]
  - Platelet count decreased [Fatal]
  - Full blood count decreased [Fatal]

NARRATIVE: CASE EVENT DATE: 202001
